FAERS Safety Report 6153421-3 (Version None)
Quarter: 2009Q2

REPORT INFORMATION
  Report Type: 
  Country: None (occurrence: None)
  Receive Date: 20090409
  Receipt Date: 20090409
  Transmission Date: 20091009
  Serious: Yes (Hospitalization)
  Sender: FDA-Public Use
  Company Number: None

PATIENT
  Sex: Male
  Weight: 97.5234 kg

DRUGS (7)
  1. VIDAZA [Suspect]
     Indication: PROSTATE CANCER
     Dosage: 150 MG IV
     Route: 042
     Dates: start: 20090112, end: 20090330
  2. DOCETAXEL [Suspect]
     Indication: PROSTATE CANCER
     Dosage: 75 MG IV
     Route: 042
     Dates: start: 20090112, end: 20090330
  3. VYTORIN [Concomitant]
  4. METFORMIN HCL [Concomitant]
  5. LUPRON [Concomitant]
  6. PERCOCET [Concomitant]
  7. PREDNISONE [Concomitant]

REACTIONS (3)
  - ANAEMIA [None]
  - MYOCARDIAL INFARCTION [None]
  - MYOCARDIAL ISCHAEMIA [None]
